FAERS Safety Report 4563262-6 (Version None)
Quarter: 2005Q1

REPORT INFORMATION
  Report Type: 
  Country: None (occurrence: None)
  Receive Date: 20050125
  Receipt Date: 20010712
  Transmission Date: 20050727
  Serious: Yes (Other)
  Sender: FDA-Public Use
  Company Number: 200110749

PATIENT
  Sex: Female

DRUGS (1)
  1. ZORAC GEL 0.05% [Suspect]
     Indication: PSORIASIS
     Dates: end: 20000111

REACTIONS (5)
  - ABORTION SPONTANEOUS [None]
  - DRUG EXPOSURE DURING PREGNANCY [None]
  - FIBROMA [None]
  - UNINTENDED PREGNANCY [None]
  - UTERINE DISORDER [None]
